FAERS Safety Report 6248996-X (Version None)
Quarter: 2009Q2

REPORT INFORMATION
  Report Type: 
  Country: None (occurrence: None)
  Receive Date: 20090629
  Receipt Date: 20090617
  Transmission Date: 20091009
  Serious: No
  Sender: FDA-Public Use
  Company Number: JP-PFIZER INC-2009225244

PATIENT

DRUGS (4)
  1. ZITHROMAX [Suspect]
     Dosage: UNK
     Route: 048
     Dates: start: 20090603, end: 20090605
  2. MEDICON [Concomitant]
  3. MUCODYNE [Concomitant]
  4. HOKUNALIN [Concomitant]
     Route: 058

REACTIONS (1)
  - MYALGIA [None]
